FAERS Safety Report 18918637 (Version 3)
Quarter: 2021Q1

REPORT INFORMATION
  Report Type: Report from Study
  Country: None (occurrence: US)
  Receive Date: 20210220
  Receipt Date: 20210304
  Transmission Date: 20210420
  Serious: Yes (Hospitalization, Other)
  Sender: FDA-Public Use
  Company Number: US-ABBVIE-21K-163-3781079-00

PATIENT
  Age: 59 Year
  Sex: Male
  Weight: 54.48 kg

DRUGS (1)
  1. CREON [Suspect]
     Active Substance: PANCRELIPASE AMYLASE\PANCRELIPASE LIPASE\PANCRELIPASE PROTEASE
     Indication: PANCREATICODUODENECTOMY
     Dosage: 2 CAPS WITH MEALS 3 TIMES A DAY
     Route: 048
     Dates: start: 2018

REACTIONS (6)
  - Pyrexia [Recovered/Resolved]
  - Hospitalisation [Recovering/Resolving]
  - Bacterial infection [Not Recovered/Not Resolved]
  - Hepatic artery embolism [Not Recovered/Not Resolved]
  - Pancreaticoduodenectomy [Recovering/Resolving]
  - Fatigue [Not Recovered/Not Resolved]

NARRATIVE: CASE EVENT DATE: 202004
